FAERS Safety Report 24890231 (Version 1)
Quarter: 2025Q1

REPORT INFORMATION
  Report Type: Spontaneous
  Country: US (occurrence: US)
  Receive Date: 20250127
  Receipt Date: 20250127
  Transmission Date: 20250409
  Serious: No
  Sender: PERRIGO
  Company Number: US-PERRIGO-24US000687

PATIENT
  Age: 5 Year
  Sex: Male
  Weight: 21.769 kg

DRUGS (1)
  1. IBUPROFEN [Suspect]
     Active Substance: IBUPROFEN
     Indication: Ear pain
     Route: 048
     Dates: start: 20240108, end: 20240108

REACTIONS (6)
  - Reaction to excipient [Recovered/Resolved]
  - Anger [Recovered/Resolved]
  - Aggression [Recovered/Resolved]
  - Psychomotor hyperactivity [Recovered/Resolved]
  - Restless legs syndrome [Recovered/Resolved]
  - Restless arm syndrome [Recovered/Resolved]

NARRATIVE: CASE EVENT DATE: 20240108
